FAERS Safety Report 4644885-2 (Version None)
Quarter: 2005Q2

REPORT INFORMATION
  Report Type: 
  Country: None (occurrence: None)
  Receive Date: 20050422
  Receipt Date: 20050406
  Transmission Date: 20051028
  Serious: Yes (Other)
  Sender: FDA-Public Use
  Company Number: PHBS2005US05134

PATIENT
  Age: 16 Year
  Sex: Female

DRUGS (2)
  1. VISUDYNE [Suspect]
     Indication: HAEMANGIOMA OF RETINA
     Dosage: 6 MG/M^2 ONCE IV
     Route: 042
     Dates: start: 20030101, end: 20030101
  2. VISUDYNE [Suspect]
     Indication: HAEMANGIOMA OF RETINA
     Dosage: 6 MG/M^2 ONCE IV
     Route: 042
     Dates: start: 20021113, end: 20021113

REACTIONS (5)
  - CHOROIDAL NEOVASCULARISATION [None]
  - MACULOPATHY [None]
  - RETINAL DETACHMENT [None]
  - RETINAL NEOVASCULARISATION [None]
  - VISUAL ACUITY REDUCED [None]
